FAERS Safety Report 24031663 (Version 1)
Quarter: 2024Q2

REPORT INFORMATION
  Report Type: Spontaneous
  Country: US (occurrence: US)
  Receive Date: 20240629
  Receipt Date: 20240629
  Transmission Date: 20240715
  Serious: No
  Sender: FDA-Public Use
  Company Number: US-ABBVIE-5814790

PATIENT

DRUGS (2)
  1. RINVOQ [Suspect]
     Active Substance: UPADACITINIB
     Indication: Product used for unknown indication
     Route: 048
  2. PSILOCYBIN [Concomitant]
     Active Substance: PSILOCYBIN
     Indication: Product used for unknown indication

REACTIONS (1)
  - Adverse drug reaction [Unknown]
